FAERS Safety Report 17301126 (Version 4)
Quarter: 2021Q1

REPORT INFORMATION
  Report Type: Spontaneous
  Country: US (occurrence: US)
  Receive Date: 20200122
  Receipt Date: 20210304
  Transmission Date: 20210419
  Serious: Yes (Other)
  Sender: FDA-Public Use
  Company Number: US-PFIZER INC-2020030906

PATIENT
  Age: 69 Year
  Sex: Female
  Weight: 102.04 kg

DRUGS (7)
  1. IBRANCE [Suspect]
     Active Substance: PALBOCICLIB
     Indication: BREAST CANCER METASTATIC
     Dosage: 100 MG, DAILY
  2. REYATAZ [Concomitant]
     Active Substance: ATAZANAVIR SULFATE
     Dosage: UNK
  3. HERCEPTIN [Concomitant]
     Active Substance: TRASTUZUMAB
     Indication: BREAST CANCER METASTATIC
     Dosage: UNK (EVERY 4 WEEKS)
  4. ALPRAZOLAM. [Concomitant]
     Active Substance: ALPRAZOLAM
     Indication: ANXIETY
  5. BUPROPION. [Concomitant]
     Active Substance: BUPROPION
     Dosage: 150 MG, 1X/DAY
  6. ALPRAZOLAM. [Concomitant]
     Active Substance: ALPRAZOLAM
     Indication: PAIN
     Dosage: UNK
  7. FASLODEX [Concomitant]
     Active Substance: FULVESTRANT
     Indication: BREAST CANCER METASTATIC
     Dosage: UNK (EVERY 4 WEEKS)

REACTIONS (14)
  - Aphonia [Unknown]
  - Nausea [Unknown]
  - Cough [Unknown]
  - Pulmonary congestion [Unknown]
  - Fatigue [Unknown]
  - Pain in extremity [Unknown]
  - Skin lesion [Unknown]
  - Ear pain [Unknown]
  - Pulmonary pain [Unknown]
  - Diarrhoea [Unknown]
  - Oropharyngeal pain [Unknown]
  - Cognitive disorder [Unknown]
  - Illness [Unknown]
  - Asthenia [Unknown]
